FAERS Safety Report 6427498-1 (Version None)
Quarter: 2009Q4

REPORT INFORMATION
  Report Type: 
  Country: None (occurrence: None)
  Receive Date: 20091104
  Receipt Date: 20091026
  Transmission Date: 20100525
  Serious: Yes (Other)
  Sender: FDA-Public Use
  Company Number: PHEH2009US14523

PATIENT
  Sex: Female

DRUGS (4)
  1. EXELON [Suspect]
     Indication: DEPRESSION
     Dosage: UNK, UNK
     Route: 062
  2. EXELON [Suspect]
     Indication: SLEEP DISORDER
  3. ESTROGEN NOS [Suspect]
  4. PROVIGIL [Concomitant]
     Dosage: UNK, UNK

REACTIONS (3)
  - APPLICATION SITE ERYTHEMA [None]
  - MEMORY IMPAIRMENT [None]
  - THROMBOSIS [None]
